FAERS Safety Report 15677868 (Version 1)
Quarter: 2018Q4

REPORT INFORMATION
  Report Type: Spontaneous
  Country: US (occurrence: US)
  Receive Date: 20181130
  Receipt Date: 20181130
  Transmission Date: 20190205
  Serious: No
  Sender: FDA-Public Use
  Company Number: US-PORTOLA PHARMACEUTICALS, INC.-2018US000004

PATIENT

DRUGS (3)
  1. ANDEXXA [Suspect]
     Active Substance: ANDEXANET ALFA
     Indication: PROCOAGULANT THERAPY
     Dosage: 800 MG, SINGLE
     Route: 042
     Dates: start: 20180604, end: 20180604
  2. XARELTO [Concomitant]
     Active Substance: RIVAROXABAN
     Indication: PULMONARY EMBOLISM
     Dosage: 15 MG, BID
  3. ANDEXXA [Suspect]
     Active Substance: ANDEXANET ALFA
     Dosage: 960 MG, SINGLE
     Route: 042
     Dates: start: 20180604, end: 20180604

REACTIONS (3)
  - Embolism venous [Unknown]
  - Blood pressure systolic increased [Unknown]
  - Chest pain [Unknown]

NARRATIVE: CASE EVENT DATE: 20180604
